FAERS Safety Report 6133739-0 (Version None)
Quarter: 2009Q1

REPORT INFORMATION
  Report Type: 
  Country: None (occurrence: None)
  Receive Date: 20090326
  Receipt Date: 20090318
  Transmission Date: 20090719
  Serious: Yes (Other)
  Sender: FDA-Public Use
  Company Number: US-ABBOTT-09P-163-0563314-00

PATIENT
  Sex: Male

DRUGS (2)
  1. HUMIRA [Suspect]
     Indication: CROHN'S DISEASE
     Route: 058
     Dates: start: 20090224, end: 20090224
  2. HUMIRA [Suspect]
     Route: 058
     Dates: start: 20090310

REACTIONS (2)
  - HERPES VIRUS INFECTION [None]
  - PILONIDAL CYST [None]
